FAERS Safety Report 10288188 (Version 2)
Quarter: 2015Q2

REPORT INFORMATION
  Report Type: Spontaneous
  Country: AT (occurrence: AT)
  Receive Date: 20140709
  Receipt Date: 20150522
  Transmission Date: 20150821
  Serious: Yes (Death, Other)
  Sender: FDA-Public Use
  Company Number: AT-BAYER-2014-098911

PATIENT
  Age: 57 Year
  Sex: Male

DRUGS (1)
  1. SORAFENIB (RAF KINASE INHIBITOR) [Suspect]
     Active Substance: SORAFENIB
     Indication: HEPATOCELLULAR CARCINOMA
     Dosage: UNK
     Dates: start: 201210

REACTIONS (4)
  - Chronic myelomonocytic leukaemia [Fatal]
  - Respiratory failure [Fatal]
  - White blood cell count increased [Fatal]
  - Myeloblast count increased [Fatal]
